FAERS Safety Report 24656823 (Version 1)
Quarter: 2024Q4

REPORT INFORMATION
  Report Type: Report from Study
  Country: US (occurrence: US)
  Receive Date: 20241125
  Receipt Date: 20241125
  Transmission Date: 20250115
  Serious: Yes (Hospitalization)
  Sender: ABBVIE
  Company Number: US-ABBVIE-6016645

PATIENT
  Age: 60 Year
  Sex: Female

DRUGS (3)
  1. SKYRIZI [Suspect]
     Active Substance: RISANKIZUMAB-RZAA
     Indication: Psoriatic arthropathy
     Dosage: DOSAGE: 150 MG/ML FORM STRENGTH: 150 MG/ML, WEEK 0
     Route: 058
     Dates: start: 20231201, end: 20231201
  2. SKYRIZI [Suspect]
     Active Substance: RISANKIZUMAB-RZAA
     Dosage: DOSAGE: 150 MG/ML FORM STRENGTH: 150 MG/ML, WEEK 4
     Route: 058
     Dates: start: 20231229, end: 20231229
  3. SKYRIZI [Suspect]
     Active Substance: RISANKIZUMAB-RZAA
     Dosage: DOSAGE: 150 MG/ML FORM STRENGTH: 150 MG/ML
     Route: 058
     Dates: start: 2024

REACTIONS (1)
  - Urosepsis [Unknown]

NARRATIVE: CASE EVENT DATE: 20240101
